FAERS Safety Report 6190993-7 (Version None)
Quarter: 2009Q2

REPORT INFORMATION
  Report Type: 
  Country: None (occurrence: None)
  Receive Date: 20090513
  Receipt Date: 20090501
  Transmission Date: 20091009
  Serious: Yes (Hospitalization)
  Sender: FDA-Public Use
  Company Number: 234834K09USA

PATIENT
  Age: 53 Year
  Sex: Female

DRUGS (8)
  1. REBIF [Suspect]
     Indication: MULTIPLE SCLEROSIS
     Dosage: 44 MCG, 3 IN 1 WEEKS, SUBCUTANEOUS
     Route: 058
     Dates: start: 20090302
  2. BACLOFEN [Concomitant]
  3. LYRICA [Concomitant]
  4. HYDROCHLOROTHIAZIDE [Concomitant]
  5. IBUPROFEN [Concomitant]
  6. ATIVAN [Concomitant]
  7. CYTOXAN [Concomitant]
  8. SOLU-MEDROL [Concomitant]

REACTIONS (2)
  - HAEMOGLOBIN DECREASED [None]
  - PRESYNCOPE [None]
